FAERS Safety Report 17462454 (Version 1)
Quarter: 2020Q1

REPORT INFORMATION
  Report Type: Spontaneous
  Country: CA (occurrence: CA)
  Receive Date: 20200226
  Receipt Date: 20200226
  Transmission Date: 20200409
  Serious: Yes (Other)
  Sender: FDA-Public Use
  Company Number: CA-TEVA-2020-CA-1189470

PATIENT
  Sex: Female

DRUGS (3)
  1. PALBOCICLIB [Suspect]
     Active Substance: PALBOCICLIB
     Dates: start: 201810
  2. ZOMETA [Concomitant]
     Active Substance: ZOLEDRONIC ACID
     Dosage: Q3MONTHLY
  3. ANASTROZOLE. [Suspect]
     Active Substance: ANASTROZOLE
     Dates: start: 201810

REACTIONS (7)
  - Pneumonia [Unknown]
  - Fatigue [Recovered/Resolved]
  - Diplopia [Unknown]
  - Ecchymosis [Unknown]
  - Periorbital oedema [Unknown]
  - Nausea [Not Recovered/Not Resolved]
  - Dyspnoea [Not Recovered/Not Resolved]
